FAERS Safety Report 7897307-2 (Version None)
Quarter: 2011Q4

REPORT INFORMATION
  Report Type: 
  Country: None (occurrence: None)
  Receive Date: 20111107
  Receipt Date: 20111102
  Transmission Date: 20120403
  Serious: Yes (Hospitalization)
  Sender: FDA-Public Use
  Company Number: PHHY2011CA097131

PATIENT
  Weight: 84 kg

DRUGS (9)
  1. DIDROCAL [Concomitant]
     Dosage: 400 MG, QD
  2. FORTEO [Concomitant]
     Dosage: 20 MG, QD
  3. CALCIUM [Concomitant]
     Dosage: 500 UKN, UNK
     Dates: start: 20101101
  4. CALCIUM [Concomitant]
     Dosage: 1000 UKN, UNK
     Dates: start: 20070301, end: 20101101
  5. MIACALCIN [Concomitant]
     Dosage: 200 IU, QD
  6. VITAMIN D [Concomitant]
     Dosage: 800 UKN, UNK
     Dates: start: 20070301
  7. ZOLEDRONOC ACID [Suspect]
     Dosage: 5 MG, UNK
     Route: 042
     Dates: start: 20090901
  8. ACTONEL [Suspect]
     Dosage: UNK UKN, UNK
     Dates: start: 20091110, end: 20091117
  9. EVISTA [Concomitant]
     Dosage: 670 MG, QD

REACTIONS (1)
  - BRONCHITIS [None]
